FAERS Safety Report 24127070 (Version 1)
Quarter: 2024Q3

REPORT INFORMATION
  Report Type: Report from Study
  Country: US (occurrence: US)
  Receive Date: 20240723
  Receipt Date: 20240723
  Transmission Date: 20241016
  Serious: No
  Sender: VANDA PHARMACEUTICALS
  Company Number: US-VANDA PHARMACEUTICALS, INC-2024TASUS007279

PATIENT
  Sex: Female

DRUGS (5)
  1. HETLIOZ [Suspect]
     Active Substance: TASIMELTEON
     Indication: Non-24-hour sleep-wake disorder
     Dosage: 20 MILLIGRAM, QD, AT THE SAME TIME EACH NIGHT 1 HOUR BEFORE BETIME, WITHOUT FOOD
     Route: 048
     Dates: start: 20220227
  2. METFORMIN [Concomitant]
     Active Substance: METFORMIN HYDROCHLORIDE
     Indication: Product used for unknown indication
  3. OXYBUTYNIN [Concomitant]
     Active Substance: OXYBUTYNIN\OXYBUTYNIN CHLORIDE
     Indication: Product used for unknown indication
  4. GLIMEPIRIDE [Concomitant]
     Active Substance: GLIMEPIRIDE
     Indication: Product used for unknown indication
  5. PANTOPRAZOLE [Concomitant]
     Active Substance: PANTOPRAZOLE
     Indication: Product used for unknown indication

REACTIONS (2)
  - Influenza [Unknown]
  - Product dose omission issue [Unknown]
